FAERS Safety Report 18607075 (Version 2)
Quarter: 2020Q4

REPORT INFORMATION
  Report Type: Spontaneous
  Country: US (occurrence: US)
  Receive Date: 20201211
  Receipt Date: 20201216
  Transmission Date: 20210114
  Serious: No
  Sender: FDA-Public Use
  Company Number: US-PFIZER INC-2020485048

PATIENT
  Age: 48 Year
  Sex: Male
  Weight: 145.6 kg

DRUGS (1)
  1. PHENYTOIN SODIUM. [Suspect]
     Active Substance: PHENYTOIN SODIUM
     Indication: SEIZURE
     Dosage: 300 MG, 2X/DAY(300MG IN MORNING AND 300MG AT NIGHT)
     Route: 048
     Dates: start: 2010

REACTIONS (4)
  - Musculoskeletal stiffness [Unknown]
  - Drug ineffective [Unknown]
  - Stress [Unknown]
  - Pain [Unknown]
